FAERS Safety Report 8918520 (Version 1)
Quarter: 2012Q4

REPORT INFORMATION
  Report Type: 
  Country: US (occurrence: US)
  Receive Date: 20121120
  Receipt Date: 20121120
  Transmission Date: 20130627
  Serious: No
  Sender: FDA-Public Use
  Company Number: US-ASTRAZENECA-2012SE18648

PATIENT
  Age: 65 Year
  Sex: Female
  Weight: 76.2 kg

DRUGS (15)
  1. NEXIUM [Suspect]
     Indication: GASTROOESOPHAGEAL REFLUX DISEASE
     Route: 048
     Dates: start: 2009
  2. NEXIUM [Suspect]
     Indication: GASTROOESOPHAGEAL REFLUX DISEASE
     Route: 048
  3. ENTERIC ASPIRIN [Concomitant]
  4. AMLODIPINE [Concomitant]
     Indication: BLOOD PRESSURE
  5. FLECAINDE [Concomitant]
     Indication: ATRIAL FIBRILLATION
  6. FLECTOR PATCH [Concomitant]
     Indication: PAIN
  7. FORTEO [Concomitant]
     Indication: OSTEOPOROSIS
  8. MOBIC [Concomitant]
     Indication: ANTIINFLAMMATORY THERAPY
  9. MICARDIS HCT [Concomitant]
     Indication: HYPERTENSION
  10. POTASSIUM CHLORIDE [Concomitant]
  11. SIMVASTATIN [Concomitant]
     Indication: BLOOD CHOLESTEROL
  12. OTC VITAMIN B [Concomitant]
  13. OTC VITAMIN D [Concomitant]
  14. WARFARIN [Concomitant]
     Indication: ANTICOAGULANT THERAPY
  15. ACIPHEX [Concomitant]

REACTIONS (11)
  - Abnormal faeces [Unknown]
  - Vulvovaginal pain [Unknown]
  - Groin pain [Unknown]
  - Fatigue [Unknown]
  - Abnormal faeces [Unknown]
  - Fatigue [Unknown]
  - Condition aggravated [Unknown]
  - Dry mouth [Unknown]
  - Flatulence [Unknown]
  - Abdominal pain [Unknown]
  - Intentional drug misuse [Unknown]
